FAERS Safety Report 15719304 (Version 2)
Quarter: 2018Q4

REPORT INFORMATION
  Report Type: Spontaneous
  Country: US (occurrence: US)
  Receive Date: 20181213
  Receipt Date: 20181218
  Transmission Date: 20190205
  Serious: No
  Sender: FDA-Public Use
  Company Number: US-PFIZER INC-2018507940

PATIENT
  Sex: Male
  Weight: 117.9 kg

DRUGS (1)
  1. NEURONTIN [Suspect]
     Active Substance: GABAPENTIN
     Indication: INTERVERTEBRAL DISC DEGENERATION
     Dosage: UNK (300 OR 400 MG), 3X/DAY
     Route: 048
     Dates: start: 2010, end: 2018

REACTIONS (1)
  - Drug ineffective for unapproved indication [Unknown]
